FAERS Safety Report 25914849 (Version 1)
Quarter: 2025Q4

REPORT INFORMATION
  Report Type: Spontaneous
  Country: TW (occurrence: TW)
  Receive Date: 20251013
  Receipt Date: 20251013
  Transmission Date: 20260117
  Serious: Yes (Hospitalization)
  Sender: BAYER HEALTHCARE PHARMACEUTICALS INC.
  Company Number: TW-BAYER-2025A134049

PATIENT
  Age: 45 Year
  Sex: Female

DRUGS (4)
  1. STIVARGA [Suspect]
     Active Substance: REGORAFENIB MONOHYDRATE
     Indication: Hepatic cancer metastatic
     Dosage: 120 MG, QD
     Route: 048
     Dates: start: 20250722
  2. SUNITINIB [Suspect]
     Active Substance: SUNITINIB
     Indication: Hepatic cancer metastatic
     Dosage: 37.5 MG, QD
     Route: 048
     Dates: start: 20240222, end: 20250721
  3. DIETARY SUPPLEMENT\HERBALS\MILK THISTLE [Concomitant]
     Active Substance: MILK THISTLE
  4. LANSOPRAZOLE [Concomitant]
     Active Substance: LANSOPRAZOLE

REACTIONS (7)
  - Pyrexia [Recovered/Resolved]
  - Blood pressure increased [None]
  - Heart rate increased [None]
  - Protein urine present [None]
  - Bacterial test positive [None]
  - Product prescribing issue [None]
  - Incorrect dose administered [None]

NARRATIVE: CASE EVENT DATE: 20250722
